FAERS Safety Report 8798999 (Version 1)
Quarter: 2012Q4

REPORT INFORMATION
  Report Type: 
  Country: AU (occurrence: AU)
  Receive Date: 20120920
  Receipt Date: 20120920
  Transmission Date: 20130627
  Serious: Yes (Other)
  Sender: FDA-Public Use
  Company Number: AU-BRISTOL-MYERS SQUIBB COMPANY-16948366

PATIENT
  Age: 35 Year
  Sex: Female

DRUGS (1)
  1. KENACORT [Suspect]
     Indication: SPINAL PAIN
     Dosage: 1DF:80-120mg (Total dose). Injection.

REACTIONS (1)
  - Suppressed lactation [Recovered/Resolved]
